FAERS Safety Report 6804826-6 (Version None)
Quarter: 2010Q2

REPORT INFORMATION
  Report Type: 
  Country: None (occurrence: None)
  Receive Date: 20100628
  Receipt Date: 20070530
  Transmission Date: 20101027
  Serious: No
  Sender: FDA-Public Use
  Company Number: US-PFIZER INC-2007044980

PATIENT
  Age: 48 Year
  Sex: Male

DRUGS (3)
  1. GEODON [Suspect]
     Route: 048
  2. BEANO [Suspect]
  3. LEXAPRO [Concomitant]
     Route: 048

REACTIONS (1)
  - INHIBITORY DRUG INTERACTION [None]
